FAERS Safety Report 10612158 (Version 4)
Quarter: 2016Q2

REPORT INFORMATION
  Report Type: Spontaneous
  Country: ES (occurrence: ES)
  Receive Date: 20141127
  Receipt Date: 20160506
  Transmission Date: 20160815
  Serious: Yes (Hospitalization, Other)
  Sender: FDA-Public Use
  Company Number: ES-AMGEN-ESPSP2014090954

PATIENT
  Age: 67 Year
  Sex: Female

DRUGS (5)
  1. PROLIA [Suspect]
     Active Substance: DENOSUMAB
     Indication: OSTEOPOROSIS
     Dosage: UNK
     Route: 065
     Dates: start: 201211
  2. SEGURIL [Concomitant]
     Active Substance: FUROSEMIDE
     Dosage: UNK
  3. SINTROM [Concomitant]
     Active Substance: ACENOCOUMAROL
     Indication: CARDIAC DISORDER
     Dosage: UNK
  4. ATACAND [Concomitant]
     Active Substance: CANDESARTAN CILEXETIL
     Indication: HYPERTENSION
     Dosage: UNK
  5. DIGOXIN. [Concomitant]
     Active Substance: DIGOXIN
     Indication: CARDIAC DISORDER
     Dosage: UNK

REACTIONS (16)
  - Malaise [Recovered/Resolved]
  - Decreased appetite [Not Recovered/Not Resolved]
  - Vision blurred [Recovered/Resolved]
  - Gait disturbance [Not Recovered/Not Resolved]
  - Bone pain [Not Recovered/Not Resolved]
  - Fatigue [Not Recovered/Not Resolved]
  - Dizziness [Recovered/Resolved]
  - Fat tissue increased [Recovered/Resolved]
  - Activities of daily living impaired [Unknown]
  - Headache [Recovered/Resolved]
  - Myalgia [Not Recovered/Not Resolved]
  - Pain in extremity [Unknown]
  - Pelvic neoplasm [Not Recovered/Not Resolved]
  - Ischaemic stroke [Not Recovered/Not Resolved]
  - Hypoaesthesia [Unknown]
  - Functional gastrointestinal disorder [Not Recovered/Not Resolved]

NARRATIVE: CASE EVENT DATE: 201211
